FAERS Safety Report 4329625-9 (Version None)
Quarter: 2004Q1

REPORT INFORMATION
  Report Type: 
  Country: None (occurrence: None)
  Receive Date: 20040329
  Receipt Date: 20040212
  Transmission Date: 20041129
  Serious: No
  Sender: FDA-Public Use
  Company Number: 04P-163-0250391-00

PATIENT
  Age: 54 Year
  Sex: Female
  Weight: 97 kg

DRUGS (11)
  1. HUMIRA [Suspect]
     Indication: RHEUMATOID ARTHRITIS
     Dosage: 40 MG, 1 IN 2 WK, SUBCUTANEOUS
     Route: 058
     Dates: start: 20030301, end: 20040101
  2. BUCINDOLOL HYDROCHLORIDE [Concomitant]
  3. PREDNISONE [Concomitant]
  4. ACETAMINOPHEN [Concomitant]
  5. GLUCOSAMINE W/CHONDROITIN SULFATES [Concomitant]
  6. RANITIDINE [Concomitant]
  7. MUSCLE RELAXANTS [Concomitant]
  8. MULTI-VITAMINS [Concomitant]
  9. CALCIUM [Concomitant]
  10. IRON [Concomitant]
  11. FOLIC ACID [Concomitant]

REACTIONS (4)
  - ASTHENOPIA [None]
  - EYE DISCHARGE [None]
  - EYE PRURITUS [None]
  - EYE REDNESS [None]
